FAERS Safety Report 26198474 (Version 1)
Quarter: 2025Q4

REPORT INFORMATION
  Report Type: Spontaneous
  Country: TW (occurrence: TW)
  Receive Date: 20251224
  Receipt Date: 20251224
  Transmission Date: 20260118
  Serious: Yes (Other)
  Sender: MERCK SHARP & DOHME LLC
  Company Number: TW-TFDA-TDS-1140009610

PATIENT
  Age: 61 Year
  Sex: Female
  Weight: 59 kg

DRUGS (5)
  1. INVANZ [Suspect]
     Active Substance: ERTAPENEM SODIUM
     Route: 042
  2. FLUCONAZOLE [Suspect]
     Active Substance: FLUCONAZOLE
     Dosage: FREQUENCY: ONCE EVERY 0.33 DAYS
     Route: 042
     Dates: start: 20250902, end: 20250903
  3. KETOPROFEN [Suspect]
     Active Substance: KETOPROFEN
     Dosage: STRENGTH: 25MG/ML?DOSE: 1 VIAL
     Route: 030
     Dates: start: 20250901, end: 20250901
  4. CEFTRIAXONE [Suspect]
     Active Substance: CEFTRIAXONE
     Dosage: FREQUENCY: EVERY 0.5 DAYS ONCE
     Route: 051
     Dates: start: 20250901, end: 20250902
  5. OMNIPAQUE [Suspect]
     Active Substance: IOHEXOL
     Route: 065

REACTIONS (1)
  - Stevens-Johnson syndrome [Recovering/Resolving]

NARRATIVE: CASE EVENT DATE: 20150902
